FAERS Safety Report 20065229 (Version 1)
Quarter: 2021Q4

REPORT INFORMATION
  Report Type: Spontaneous
  Country: US (occurrence: US)
  Receive Date: 20211113
  Receipt Date: 20211113
  Transmission Date: 20220303
  Serious: Yes (Other)
  Sender: FDA-Public Use
  Company Number: US-UNITED THERAPEUTICS-UNT-2021-021741

PATIENT
  Sex: Female

DRUGS (3)
  1. REMODULIN [Suspect]
     Active Substance: TREPROSTINIL
     Indication: Pulmonary arterial hypertension
     Dosage: UNK, CONTINUING
     Route: 041
     Dates: start: 20200122
  2. REMODULIN [Suspect]
     Active Substance: TREPROSTINIL
     Dosage: 0.097 ?G/KG, CONTINUING
     Route: 041
  3. MACITENTAN [Concomitant]
     Active Substance: MACITENTAN
     Indication: Pulmonary arterial hypertension
     Dosage: 10 MG, QD (1 IN 1 DAY)
     Route: 048
     Dates: start: 20200220

REACTIONS (9)
  - Tricuspid valve incompetence [Unknown]
  - Ventricular dyskinesia [Unknown]
  - Right ventricular failure [Unknown]
  - Pulmonary hypertension [Not Recovered/Not Resolved]
  - Vascular resistance pulmonary increased [Unknown]
  - Systolic dysfunction [Unknown]
  - Right ventricular enlargement [Unknown]
  - Pulmonary arterial pressure increased [Unknown]
  - Transvalvular pressure gradient increased [Unknown]
